FAERS Safety Report 4844252-2 (Version None)
Quarter: 2005Q4

REPORT INFORMATION
  Report Type: 
  Country: None (occurrence: None)
  Receive Date: 20051202
  Receipt Date: 20051123
  Transmission Date: 20060501
  Serious: Yes (Life-Threatening, Other)
  Sender: FDA-Public Use
  Company Number: JP-MERCK-0511USA04297

PATIENT
  Age: 5 Year
  Sex: Female

DRUGS (2)
  1. CRIXIVAN [Suspect]
     Indication: ACQUIRED IMMUNODEFICIENCY SYNDROME
     Route: 048
     Dates: end: 20000801
  2. ZIDOVUDINE [Concomitant]
     Route: 065

REACTIONS (10)
  - ABDOMINAL MASS [None]
  - ABDOMINAL PAIN [None]
  - ANAEMIA HAEMOLYTIC AUTOIMMUNE [None]
  - ASCITES [None]
  - BLOOD HIV RNA INCREASED [None]
  - HEPATOSPLENOMEGALY [None]
  - MALAISE [None]
  - MYCOBACTERIUM AVIUM COMPLEX INFECTION [None]
  - PYREXIA [None]
  - VOMITING [None]
